FAERS Safety Report 13428980 (Version 3)
Quarter: 2017Q3

REPORT INFORMATION
  Report Type: Report from Study
  Country: FR (occurrence: FR)
  Receive Date: 20170411
  Receipt Date: 20170824
  Transmission Date: 20171127
  Serious: Yes (Hospitalization)
  Sender: FDA-Public Use
  Company Number: FR-ROCHE-1914328

PATIENT
  Age: 69 Year
  Sex: Male

DRUGS (2)
  1. ATEZOLIZUMAB. [Suspect]
     Active Substance: ATEZOLIZUMAB
     Indication: TRANSITIONAL CELL CARCINOMA
     Route: 042
     Dates: start: 20170307, end: 20170307
  2. JAVLOR [Concomitant]

REACTIONS (1)
  - Histiocytosis haematophagic [Not Recovered/Not Resolved]

NARRATIVE: CASE EVENT DATE: 20170321
